FAERS Safety Report 4318645-6 (Version None)
Quarter: 2004Q1

REPORT INFORMATION
  Report Type: 
  Country: None (occurrence: None)
  Receive Date: 20040315
  Receipt Date: 20040304
  Transmission Date: 20041129
  Serious: Yes (Hospitalization)
  Sender: FDA-Public Use
  Company Number: GB-JNJFOC-20040300995

PATIENT
  Age: 66 Year
  Sex: Female

DRUGS (9)
  1. REMICADE [Suspect]
     Indication: RHEUMATOID ARTHRITIS
     Dosage: 120 MG, INTRAVENOUS
     Route: 042
     Dates: start: 20030701
  2. PETHIDINE (PETHIDINE) [Concomitant]
  3. FERROUS SULPHATE (FERROUS SULPHATE) [Concomitant]
  4. VITAMIN B12 [Concomitant]
  5. HRT (ANDROGENS AND FEMALE SEX HORMONES IN COMB) [Concomitant]
  6. DICLOFENAC SODIUM [Concomitant]
  7. DIAZEPAM [Concomitant]
  8. CO-PROXAMOL (APOREX) [Concomitant]
  9. GAVISCON [Concomitant]

REACTIONS (1)
  - PELVIC FRACTURE [None]
